FAERS Safety Report 5394327-7 (Version None)
Quarter: 2007Q3

REPORT INFORMATION
  Report Type: 
  Country: None (occurrence: None)
  Receive Date: 20070723
  Receipt Date: 20070712
  Transmission Date: 20080115
  Serious: Yes (Other)
  Sender: FDA-Public Use
  Company Number: US-ROCHE-506892

PATIENT
  Sex: Female

DRUGS (4)
  1. PEGASYS [Suspect]
     Route: 058
  2. RIBAVIRIN [Suspect]
     Route: 065
  3. RIBAVIRIN [Suspect]
     Route: 065
  4. RIBAVIRIN [Suspect]
     Route: 065

REACTIONS (1)
  - DEEP VEIN THROMBOSIS [None]
